FAERS Safety Report 16465240 (Version 5)
Quarter: 2019Q4

REPORT INFORMATION
  Report Type: Report from Study
  Country: US (occurrence: US)
  Receive Date: 20190621
  Receipt Date: 20191117
  Transmission Date: 20200122
  Serious: Yes (Other)
  Sender: FDA-Public Use
  Company Number: US-MALLINCKRODT-T201903609

PATIENT
  Age: 68 Year
  Sex: Male
  Weight: 124 kg

DRUGS (3)
  1. REPOSITORY CORTICOTROPIN INJECTION [Suspect]
     Active Substance: CORTICOTROPIN
     Indication: SARCOIDOSIS
     Dosage: 80 UNITS / 1 ML, 2 TIMES PER WEEK (WEDNESDAY/SATURDAY)
     Route: 058
     Dates: start: 20150803
  2. NORCO [Suspect]
     Active Substance: ACETAMINOPHEN\HYDROCODONE BITARTRATE
     Indication: PAIN
     Dosage: UNK, UNK
     Route: 065
  3. REPOSITORY CORTICOTROPIN INJECTION [Suspect]
     Active Substance: CORTICOTROPIN
     Dosage: 80 UNITS/1 ML, 2 TIMES PER WEEK (WED/SAT)
     Route: 058
     Dates: start: 20181029

REACTIONS (15)
  - Swelling face [Unknown]
  - Frustration tolerance decreased [Unknown]
  - Emphysema [Unknown]
  - Treatment noncompliance [Unknown]
  - Abdominal distension [Not Recovered/Not Resolved]
  - Constipation [Unknown]
  - Chest pain [Unknown]
  - Peripheral swelling [Unknown]
  - Arthritis [Unknown]
  - Scrotal oedema [Not Recovered/Not Resolved]
  - Weight decreased [Unknown]
  - Pain [Unknown]
  - Memory impairment [Not Recovered/Not Resolved]
  - Lymphadenopathy [Unknown]
  - Fluid retention [Unknown]

NARRATIVE: CASE EVENT DATE: 20190505
